FAERS Safety Report 20484451 (Version 1)
Quarter: 2022Q1

REPORT INFORMATION
  Report Type: Spontaneous
  Country: CA (occurrence: CA)
  Receive Date: 20220217
  Receipt Date: 20220217
  Transmission Date: 20220424
  Serious: Yes (Other)
  Sender: FDA-Public Use
  Company Number: CA-PFIZER INC-2020180797

PATIENT
  Age: 31 Year
  Sex: Female

DRUGS (5)
  1. XELJANZ [Suspect]
     Active Substance: TOFACITINIB CITRATE
     Indication: Rheumatoid arthritis
     Dosage: 5 MG, TWICE A DAY
     Route: 048
     Dates: start: 201909, end: 20210616
  2. XELJANZ [Suspect]
     Active Substance: TOFACITINIB CITRATE
     Dosage: 5 MG, TWICE A DAY
     Route: 048
     Dates: start: 20210629
  3. METHOTREXATE [Concomitant]
     Active Substance: METHOTREXATE
     Dosage: 25 MG
  4. HYDROXYCHLOROQUINE [Concomitant]
     Active Substance: HYDROXYCHLOROQUINE
     Dosage: UNK
  5. SULFASALAZINE [Concomitant]
     Active Substance: SULFASALAZINE
     Dosage: 1 G, 2X/DAY

REACTIONS (12)
  - Cellulitis [Recovering/Resolving]
  - Retinal exudates [Recovered/Resolved]
  - Acne [Recovering/Resolving]
  - Furuncle [Recovering/Resolving]
  - Rosacea [Recovering/Resolving]
  - Pruritus [Not Recovered/Not Resolved]
  - Scab [Unknown]
  - Tinnitus [Not Recovered/Not Resolved]
  - Vulvovaginal mycotic infection [Not Recovered/Not Resolved]
  - Lichen sclerosus [Not Recovered/Not Resolved]
  - Restless legs syndrome [Not Recovered/Not Resolved]
  - Condition aggravated [Unknown]

NARRATIVE: CASE EVENT DATE: 20191101
